FAERS Safety Report 6681731-X (Version None)
Quarter: 2010Q2

REPORT INFORMATION
  Report Type: 
  Country: None (occurrence: None)
  Receive Date: 20100414
  Receipt Date: 20100406
  Transmission Date: 20101027
  Serious: Yes (Disabling, Other)
  Sender: FDA-Public Use
  Company Number: GB-TEVA-230126ISR

PATIENT
  Sex: Male

DRUGS (3)
  1. DICLOFENAC [Suspect]
     Indication: PAIN
     Route: 048
  2. ETANERCEPT [Suspect]
     Indication: ANKYLOSING SPONDYLITIS
     Route: 058
     Dates: start: 20100315
  3. ETANERCEPT [Suspect]
     Route: 058
     Dates: start: 20060619, end: 20090801

REACTIONS (6)
  - ANKYLOSING SPONDYLITIS [None]
  - CONDITION AGGRAVATED [None]
  - DEPRESSION SUICIDAL [None]
  - FIBROSIS [None]
  - LIVER FUNCTION TEST ABNORMAL [None]
  - NEUTROPENIA [None]
